FAERS Safety Report 8948175 (Version 1)
Quarter: 2012Q4

REPORT INFORMATION
  Report Type: 
  Country: US (occurrence: US)
  Receive Date: 20121204
  Receipt Date: 20121204
  Transmission Date: 20130627
  Serious: No
  Sender: FDA-Public Use
  Company Number: US-PFIZER INC-2012302033

PATIENT
  Age: 72 Year
  Sex: Female
  Weight: 71.66 kg

DRUGS (3)
  1. ARTHROTEC [Suspect]
     Indication: ARTHRITIS
     Dosage: 75/200 mg/mcg, 2x/day
     Route: 048
     Dates: end: 201211
  2. DICLOFENAC [Suspect]
     Indication: ARTHRITIS
     Dosage: 75/200 mg/mcg, 2x/day
     Route: 048
     Dates: start: 201211, end: 201211
  3. FUROSEMIDE [Concomitant]
     Dosage: UNK

REACTIONS (2)
  - Abdominal pain upper [Unknown]
  - Chest pain [Unknown]
